FAERS Safety Report 4319211-9 (Version None)
Quarter: 2004Q1

REPORT INFORMATION
  Report Type: 
  Country: None (occurrence: None)
  Receive Date: 20040316
  Receipt Date: 20040212
  Transmission Date: 20041129
  Serious: Yes (Life-Threatening, Hospitalization)
  Sender: FDA-Public Use
  Company Number: JP_030601208

PATIENT
  Age: 69 Year
  Sex: Female
  Weight: 34 kg

DRUGS (9)
  1. ZYPREXA [Suspect]
     Indication: DELUSION
     Dosage: 2.5 MG DAY
     Dates: start: 20020708, end: 20030413
  2. ZYPREXA [Suspect]
     Indication: HALLUCINATION
     Dosage: 2.5 MG DAY
     Dates: start: 20020708, end: 20030413
  3. PERMAX [Suspect]
     Indication: PARKINSON'S DISEASE
     Dosage: 750 UG/DAY
     Dates: start: 20021217
  4. SYMMETREL [Concomitant]
  5. LEVODOPA BENSERAZIDE HYDROCHLO [Concomitant]
  6. FLUVOXAMINE MALEATE [Concomitant]
  7. LEVOTHYROXINE SODIUM [Concomitant]
  8. PANTOSIN (PANTETHINE) [Concomitant]
  9. MAGNESIUM OXIDE [Concomitant]

REACTIONS (12)
  - CHOREOATHETOSIS [None]
  - DYSTONIA [None]
  - EXTRAPYRAMIDAL DISORDER [None]
  - HYPOKALAEMIA [None]
  - ON AND OFF PHENOMENON [None]
  - PSYCHIATRIC SYMPTOM [None]
  - RESPIRATORY ARREST [None]
  - SOLILOQUY [None]
  - SUICIDAL IDEATION [None]
  - TEMPERATURE REGULATION DISORDER [None]
  - THYROIDECTOMY PARTIAL [None]
  - VOCAL CORD DISORDER [None]
